FAERS Safety Report 16277541 (Version 1)
Quarter: 2019Q2

REPORT INFORMATION
  Report Type: Spontaneous
  Country: US (occurrence: US)
  Receive Date: 20190506
  Receipt Date: 20190506
  Transmission Date: 20190711
  Serious: Yes (Hospitalization, Other)
  Sender: FDA-Public Use
  Company Number: US-PFIZER INC-2019188382

PATIENT
  Age: 66 Year
  Sex: Male
  Weight: 117.93 kg

DRUGS (1)
  1. LYRICA [Suspect]
     Active Substance: PREGABALIN
     Indication: DIABETIC NEUROPATHY
     Dosage: 700 MG, DAILY [TAKES TWO 350MG BY MOUTH A DAY]
     Route: 048

REACTIONS (3)
  - Cardiac failure congestive [Unknown]
  - Myocardial infarction [Recovering/Resolving]
  - Prescribed overdose [Recovered/Resolved]
